FAERS Safety Report 4575288-7 (Version None)
Quarter: 2005Q1

REPORT INFORMATION
  Report Type: 
  Country: None (occurrence: None)
  Receive Date: 20050127
  Receipt Date: 20050127
  Transmission Date: 20050727
  Serious: Yes (Hospitalization)
  Sender: FDA-Public Use
  Company Number: None

PATIENT
  Age: 28 Year
  Sex: Female

DRUGS (4)
  1. DOXORUBICIN 50MG/M2 (84 MG) [Suspect]
     Indication: BREAST CANCER
     Dosage: IV Q 3 WEEK
     Route: 042
     Dates: start: 20050117
  2. CYTOXAN [Suspect]
     Dosage: IV Q 3 WEEK
     Route: 042
     Dates: start: 20050117
  3. DOCETAXEL 75 MG/M2 (126 MG) [Suspect]
  4. NEULASTA [Suspect]
     Dates: start: 20050118

REACTIONS (4)
  - CONSTIPATION [None]
  - DIARRHOEA [None]
  - NEUTROPENIA [None]
  - PAIN [None]
